FAERS Safety Report 8773885 (Version 1)
Quarter: 2012Q4

REPORT INFORMATION
  Report Type: 
  Country: JP (occurrence: JP)
  Receive Date: 20120907
  Receipt Date: 20120907
  Transmission Date: 20130627
  Serious: Yes (Death, Other)
  Sender: FDA-Public Use
  Company Number: JP-ASTRAZENECA-2012SE69730

PATIENT
  Age: 0 Week

DRUGS (1)
  1. MEROPEN [Suspect]
     Route: 064
     Dates: end: 20070212

REACTIONS (2)
  - Shock haemorrhagic [Fatal]
  - Subgaleal haematoma [Unknown]
